FAERS Safety Report 24334190 (Version 1)
Quarter: 2024Q3

REPORT INFORMATION
  Report Type: Spontaneous
  Country: DE (occurrence: DE)
  Receive Date: 20240918
  Receipt Date: 20240918
  Transmission Date: 20241017
  Serious: Yes (Other)
  Sender: NOVARTIS
  Company Number: DE-002147023-NVSC2024DE184219

PATIENT
  Age: 49 Year
  Sex: Female

DRUGS (1)
  1. KESIMPTA [Suspect]
     Active Substance: OFATUMUMAB
     Indication: Relapsing-remitting multiple sclerosis
     Dosage: 20 MG, QW
     Route: 058
     Dates: start: 202202

REACTIONS (8)
  - Hemiparesis [Unknown]
  - Gait disturbance [Unknown]
  - Mental disorder [Unknown]
  - Sleep disorder [Unknown]
  - Depressed mood [Unknown]
  - Saccadic eye movement [Unknown]
  - Diplopia [Unknown]
  - Fear [Unknown]
